FAERS Safety Report 11339489 (Version 1)
Quarter: 2015Q3

REPORT INFORMATION
  Report Type: Report from Study
  Country: US (occurrence: US)
  Receive Date: 20150805
  Receipt Date: 20150805
  Transmission Date: 20151125
  Serious: Yes (Other)
  Sender: FDA-Public Use
  Company Number: US-ROCHE-1616068

PATIENT
  Age: 68 Year
  Sex: Female
  Weight: 65.38 kg

DRUGS (3)
  1. LEVOTHYROXINE. [Concomitant]
     Active Substance: LEVOTHYROXINE
     Indication: THYROID DISORDER
     Route: 048
  2. HERCEPTIN [Suspect]
     Active Substance: TRASTUZUMAB
     Indication: HER-2 POSITIVE BREAST CANCER
     Route: 042
     Dates: start: 201409
  3. TURKEY TAIL MUSHROOM [Concomitant]

REACTIONS (6)
  - Cough [Unknown]
  - Upper-airway cough syndrome [Unknown]
  - Eye haemorrhage [Unknown]
  - Myalgia [Unknown]
  - Arterial occlusive disease [Unknown]
  - Hypotension [Unknown]

NARRATIVE: CASE EVENT DATE: 201503
